FAERS Safety Report 6064330-2 (Version None)
Quarter: 2009Q1

REPORT INFORMATION
  Report Type: 
  Country: None (occurrence: None)
  Receive Date: 20090204
  Receipt Date: 20090129
  Transmission Date: 20090719
  Serious: Yes (Other)
  Sender: FDA-Public Use
  Company Number: GB-ASTRAZENECA-2009GB00386

PATIENT
  Age: 61 Year
  Sex: Male

DRUGS (2)
  1. LIDOCAINE [Suspect]
     Indication: DRUG USE FOR UNKNOWN INDICATION
     Route: 061
     Dates: start: 20080914
  2. AMITRIPTYLINE HCL [Concomitant]
     Indication: NEURALGIA

REACTIONS (1)
  - APPLICATION SITE RASH [None]
